FAERS Safety Report 21198873 (Version 1)
Quarter: 2022Q3

REPORT INFORMATION
  Report Type: Spontaneous
  Country: IT (occurrence: IT)
  Receive Date: 20220811
  Receipt Date: 20220811
  Transmission Date: 20221027
  Serious: Yes (Other)
  Sender: FDA-Public Use
  Company Number: IT-MINISAL02-880068

PATIENT
  Age: 16 Year
  Sex: Female

DRUGS (2)
  1. QUETIAPINE [Suspect]
     Active Substance: QUETIAPINE
     Indication: Affective disorder
     Dosage: 3000 MG / TOTALE
     Route: 048
     Dates: start: 20210601
  2. LITHIUM CARBONATE [Concomitant]
     Active Substance: LITHIUM CARBONATE
     Indication: Borderline personality disorder
     Dosage: 1 UNIT? POSOLOGICA / DIE
     Route: 048
     Dates: start: 20210701

REACTIONS (3)
  - Drug abuse [Recovering/Resolving]
  - Somnolence [Recovering/Resolving]
  - Apraxia [Recovering/Resolving]

NARRATIVE: CASE EVENT DATE: 20220611
